FAERS Safety Report 16432890 (Version 2)
Quarter: 2019Q3

REPORT INFORMATION
  Report Type: Spontaneous
  Country: US (occurrence: US)
  Receive Date: 20190614
  Receipt Date: 20190726
  Transmission Date: 20191004
  Serious: No
  Sender: FDA-Public Use
  Company Number: US-JNJFOC-20190543077

PATIENT
  Sex: Female
  Weight: 81.65 kg

DRUGS (1)
  1. TRAMADOL HYDROCHLORIDE. [Suspect]
     Active Substance: TRAMADOL HYDROCHLORIDE
     Indication: PRODUCT USED FOR UNKNOWN INDICATION
     Route: 065

REACTIONS (7)
  - Blood sodium decreased [Unknown]
  - Paraesthesia [Unknown]
  - Neuralgia [Unknown]
  - Tremor [Unknown]
  - Off label use [Unknown]
  - Incorrect dose administered [Unknown]
  - Burning sensation [Unknown]
